FAERS Safety Report 12293446 (Version 11)
Quarter: 2018Q2

REPORT INFORMATION
  Report Type: Report from Study
  Country: BR (occurrence: BR)
  Receive Date: 20160421
  Receipt Date: 20180614
  Transmission Date: 20180711
  Serious: Yes (Hospitalization)
  Sender: FDA-Public Use
  Company Number: PHHY2016BR052551

PATIENT
  Sex: Female
  Weight: 69 kg

DRUGS (2)
  1. EXJADE [Suspect]
     Active Substance: DEFERASIROX
     Indication: MYELODYSPLASTIC SYNDROME
     Dosage: 4 DF, QD (AT NIGHT)
     Route: 048
     Dates: start: 2007
  2. EXJADE [Suspect]
     Active Substance: DEFERASIROX
     Indication: ANAEMIA
     Dosage: 2000 MG, QD (35 MG/KG)(500 MG 4 TIMES A DAY)
     Route: 048
     Dates: start: 2013

REACTIONS (20)
  - Peripheral swelling [Recovering/Resolving]
  - Infection [Recovering/Resolving]
  - Localised infection [Recovering/Resolving]
  - Asthenia [Recovering/Resolving]
  - Pyrexia [Recovering/Resolving]
  - Thrombosis [Recovering/Resolving]
  - Haematocrit decreased [Recovering/Resolving]
  - Weight increased [Unknown]
  - Erysipelas [Recovered/Resolved]
  - Erysipelas [Recovering/Resolving]
  - Ischaemia [Recovering/Resolving]
  - Hypokinesia [Recovering/Resolving]
  - Immunodeficiency [Unknown]
  - Full blood count decreased [Unknown]
  - Blister [Recovering/Resolving]
  - Cardiomegaly [Recovering/Resolving]
  - Fall [Unknown]
  - Pain [Recovering/Resolving]
  - Skin ulcer [Unknown]
  - Hypotension [Unknown]

NARRATIVE: CASE EVENT DATE: 2011
